FAERS Safety Report 10152641 (Version 1)
Quarter: 2014Q2

REPORT INFORMATION
  Report Type: Spontaneous
  Country: US (occurrence: None)
  Receive Date: 20140502
  Receipt Date: 20140502
  Transmission Date: 20141212
  Serious: Yes (Hospitalization)
  Sender: FDA-Public Use
  Company Number: None

PATIENT
  Age: 54 Year
  Sex: Female
  Weight: 73 kg

DRUGS (4)
  1. 5-FU [Suspect]
  2. CAMPTOSAR [Suspect]
  3. LEUCOVORIN CALCIUM [Suspect]
  4. ELOXATIN [Suspect]

REACTIONS (6)
  - Vomiting [None]
  - Abdominal pain upper [None]
  - Suprapubic pain [None]
  - Pyrexia [None]
  - Chills [None]
  - Respiratory rate increased [None]
